FAERS Safety Report 4310986-1 (Version None)
Quarter: 2004Q1

REPORT INFORMATION
  Report Type: 
  Country: None (occurrence: None)
  Receive Date: 20040304
  Receipt Date: 20040225
  Transmission Date: 20041129
  Serious: Yes (Other)
  Sender: FDA-Public Use
  Company Number: PHRM2004FR01029

PATIENT
  Age: 55 Year
  Sex: Male

DRUGS (6)
  1. FORADIL [Suspect]
     Indication: ASTHMA
  2. EUPHYLLINE [Concomitant]
     Indication: ASTHMA
  3. ATROVENT [Concomitant]
     Indication: ASTHMA
  4. FLIXOTIDE [Concomitant]
     Indication: ASTHMA
  5. CORTANCYL [Concomitant]
     Indication: ASTHMA
     Dosage: 30 MG, QD
     Route: 048
  6. ROVAMYCINE [Concomitant]

REACTIONS (1)
  - RETINITIS PIGMENTOSA [None]
